FAERS Safety Report 5794530-8 (Version None)
Quarter: 2008Q2

REPORT INFORMATION
  Report Type: 
  Country: None (occurrence: None)
  Receive Date: 20080626
  Receipt Date: 20080610
  Transmission Date: 20081010
  Serious: Yes (Hospitalization)
  Sender: FDA-Public Use
  Company Number: 6043547

PATIENT
  Age: 61 Year
  Sex: Female

DRUGS (11)
  1. BISOPROLOL FUMARATE [Suspect]
     Indication: DRUG USE FOR UNKNOWN INDICATION
     Dosage: ORAL
     Route: 048
     Dates: end: 20080420
  2. CORDARONE [Suspect]
     Indication: DRUG USE FOR UNKNOWN INDICATION
     Dosage: ORAL
     Route: 048
     Dates: end: 20080420
  3. ATORVASTATIN CALCIUM [Concomitant]
  4. ESOMEPRAZOLE MAGNESIUM [Concomitant]
  5. KARDEGIC (POWDER FOR ORAL SOLUTION) (ACETYLSALICYLATE LYSINE) [Concomitant]
  6. DITROPAN (TABLET) (OXYBUTYNIN) [Concomitant]
  7. LANTUS [Concomitant]
  8. TOBRADEX (EAR DROPS, SUSPENSION) (DEXAMETHASONE, TOBRAMYCIN) [Concomitant]
  9. FUROSEMIDE [Concomitant]
  10. PREVISCAN (TABLET) (FLUINDIONE) [Concomitant]
  11. FORLAX (POWDER FOR ORAL SOLUTION) (MACROGOL) [Concomitant]

REACTIONS (9)
  - BRADYCARDIA [None]
  - BUNDLE BRANCH BLOCK LEFT [None]
  - CARDIOMEGALY [None]
  - DYSPNOEA [None]
  - ELECTROCARDIOGRAM QT PROLONGED [None]
  - HEPATOJUGULAR REFLUX [None]
  - MITRAL VALVE INCOMPETENCE [None]
  - OEDEMA PERIPHERAL [None]
  - ORTHOPNOEA [None]
